FAERS Safety Report 6104535-5 (Version None)
Quarter: 2009Q1

REPORT INFORMATION
  Report Type: 
  Country: None (occurrence: None)
  Receive Date: 20090305
  Receipt Date: 20090227
  Transmission Date: 20090719
  Serious: Yes (Death, Hospitalization)
  Sender: FDA-Public Use
  Company Number: US-GILEAD-2009-0020504

PATIENT
  Sex: Female
  Weight: 96.702 kg

DRUGS (13)
  1. LETAIRIS [Suspect]
     Indication: PULMONARY HYPERTENSION
     Route: 048
     Dates: start: 20081217
  2. REVATIO [Concomitant]
     Indication: PULMONARY HYPERTENSION
     Dates: start: 20081201
  3. LASIX [Concomitant]
  4. HYZAAR [Concomitant]
  5. TOPROL-XL [Concomitant]
  6. ADVAIR HFA [Concomitant]
  7. SPIRIVA [Concomitant]
  8. OXYGEN [Concomitant]
  9. SIMVASTATIN [Concomitant]
  10. ASPIRIN [Concomitant]
  11. LUMIGAN [Concomitant]
  12. PILOCARPINE [Concomitant]
  13. TIMOLOL MALEATE [Concomitant]

REACTIONS (3)
  - CHRONIC OBSTRUCTIVE PULMONARY DISEASE [None]
  - PULMONARY EMBOLISM [None]
  - RESPIRATORY FAILURE [None]
